FAERS Safety Report 7896347-7 (Version None)
Quarter: 2011Q4

REPORT INFORMATION
  Report Type: 
  Country: None (occurrence: None)
  Receive Date: 20111106
  Receipt Date: 20110908
  Transmission Date: 20120403
  Serious: No
  Sender: FDA-Public Use
  Company Number: US-AMGEN-USASP2011046147

PATIENT
  Age: 72 Year
  Sex: Female

DRUGS (3)
  1. TREXALL [Concomitant]
     Dosage: 1 MG, QWK
     Dates: start: 20090101
  2. ENBREL [Suspect]
     Indication: RHEUMATOID ARTHRITIS
     Dosage: 50 MG, QWK
     Dates: start: 20110426
  3. PLAQUENIL [Concomitant]
     Dosage: 1 MG, UNK

REACTIONS (5)
  - LETHARGY [None]
  - LACRIMATION INCREASED [None]
  - ROSACEA [None]
  - FEELING COLD [None]
  - PERIPHERAL COLDNESS [None]
